FAERS Safety Report 16012229 (Version 1)
Quarter: 2019Q1

REPORT INFORMATION
  Report Type: Spontaneous
  Country: US (occurrence: US)
  Receive Date: 20190227
  Receipt Date: 20190227
  Transmission Date: 20190418
  Serious: No
  Sender: FDA-Public Use
  Company Number: US-TEVA-2019-US-1008320

PATIENT
  Age: 70 Year
  Sex: Female
  Weight: 94.89 kg

DRUGS (5)
  1. PRILOSEC [Suspect]
     Active Substance: OMEPRAZOLE MAGNESIUM
     Route: 065
  2. OMEPRAZOLE. [Suspect]
     Active Substance: OMEPRAZOLE
     Indication: DYSPEPSIA
     Route: 065
  3. IBRANCE [Concomitant]
     Active Substance: PALBOCICLIB
     Dosage: FOR 21 DAYS OF A 28DAY CYCLE
     Route: 048
  4. FEMARA [Concomitant]
     Active Substance: LETROZOLE
  5. XGEVA [Concomitant]
     Active Substance: DENOSUMAB
     Dosage: MONTHLY

REACTIONS (3)
  - Dyspepsia [Unknown]
  - Drug ineffective [Unknown]
  - Middle insomnia [Unknown]
